FAERS Safety Report 9350644 (Version 1)
Quarter: 2013Q2

REPORT INFORMATION
  Report Type: Spontaneous
  Country: US (occurrence: US)
  Receive Date: 20130617
  Receipt Date: 20130617
  Transmission Date: 20140414
  Serious: Yes (Other)
  Sender: FDA-Public Use
  Company Number: US-GENZYME-LEUP-1000009

PATIENT
  Age: 67 Year
  Sex: Male

DRUGS (4)
  1. LEUPROLIDE ACETATE [Suspect]
     Indication: PRODUCT USED FOR UNKNOWN INDICATION
     Dosage: UNK (3 YEARS)
     Route: 065
  2. ACETYLSALICYLIC ACID [Concomitant]
     Indication: DIVERTICULITIS
     Dosage: UNK
     Route: 065
  3. BICALUTAMIDE [Concomitant]
     Indication: PRODUCT USED FOR UNKNOWN INDICATION
     Dosage: UNK
     Route: 065
  4. NARCOTICS [Concomitant]
     Indication: PAIN
     Dosage: UNK
     Route: 065

REACTIONS (8)
  - Loss of libido [Unknown]
  - Autonomic nervous system imbalance [Recovered/Resolved]
  - Malignant neoplasm progression [Unknown]
  - Prostatic specific antigen increased [Unknown]
  - Osteoporosis [Unknown]
  - Metastases to bone [Unknown]
  - Asthenia [Recovered/Resolved]
  - Fatigue [Recovered/Resolved]
